FAERS Safety Report 16745884 (Version 6)
Quarter: 2020Q2

REPORT INFORMATION
  Report Type: Report from Study
  Country: CN (occurrence: CN)
  Receive Date: 20190827
  Receipt Date: 20200630
  Transmission Date: 20200713
  Serious: Yes (Hospitalization)
  Sender: FDA-Public Use
  Company Number: PHHO2019CN008374

PATIENT
  Age: 40 Year
  Sex: Female
  Weight: 45.4 kg

DRUGS (5)
  1. COMPARATOR LETROZOLE [Suspect]
     Active Substance: LETROZOLE
     Indication: HER2 NEGATIVE BREAST CANCER
     Dosage: 2.5 MG, QD
     Route: 048
     Dates: start: 20190722
  2. COMPARATOR GOSERELIN [Suspect]
     Active Substance: GOSERELIN
     Indication: HER2 NEGATIVE BREAST CANCER
     Dosage: 3.6 MG, Q4W
     Route: 058
     Dates: start: 20190722
  3. BATILOL. [Concomitant]
     Active Substance: BATILOL
     Indication: WHITE BLOOD CELL COUNT DECREASED
     Dosage: UNK
     Route: 065
     Dates: start: 20190808, end: 20190809
  4. BATILOL. [Concomitant]
     Active Substance: BATILOL
     Indication: NEUTROPHIL COUNT DECREASED
     Dosage: UNK
     Route: 065
     Dates: start: 20190810, end: 20190815
  5. RIBOCICLIB. [Suspect]
     Active Substance: RIBOCICLIB
     Indication: HER2 NEGATIVE BREAST CANCER
     Dosage: 600 MG, Q3W
     Route: 048
     Dates: start: 20190722, end: 20190808

REACTIONS (1)
  - Bone marrow failure [Recovered/Resolved]

NARRATIVE: CASE EVENT DATE: 20190808
